FAERS Safety Report 7371778-2 (Version None)
Quarter: 2011Q1

REPORT INFORMATION
  Report Type: 
  Country: None (occurrence: None)
  Receive Date: 20110324
  Receipt Date: 20110309
  Transmission Date: 20110831
  Serious: Yes (Hospitalization)
  Sender: FDA-Public Use
  Company Number: PHHY2011SE19478

PATIENT
  Sex: Male

DRUGS (9)
  1. WARAN [Concomitant]
     Dosage: 2.5 MG, UNK
  2. TEGRETOL [Suspect]
     Dosage: 200 MG, QD
  3. OMEPRAZOLE [Concomitant]
  4. MAXIDEX [Concomitant]
     Dosage: 1 MG/ML
  5. TEGRETOL [Suspect]
     Indication: EPILEPSY
     Dosage: 200 MG, BID
     Route: 048
  6. CITALOPRAM [Concomitant]
  7. SOBRIL [Concomitant]
     Dosage: 5 MG, UNK
  8. LOSARTAN POTASSIUM [Concomitant]
     Dosage: 12.5 MG, UNK
  9. ACETYLCYSTEIN AL [Concomitant]

REACTIONS (6)
  - FATIGUE [None]
  - DIZZINESS [None]
  - ANTICONVULSANT DRUG LEVEL INCREASED [None]
  - DYSSTASIA [None]
  - HEMIPARESIS [None]
  - GENERAL PHYSICAL HEALTH DETERIORATION [None]
